FAERS Safety Report 17344339 (Version 1)
Quarter: 2020Q1

REPORT INFORMATION
  Report Type: Spontaneous
  Country: US (occurrence: US)
  Receive Date: 20200129
  Receipt Date: 20200129
  Transmission Date: 20200409
  Serious: Yes (Hospitalization, Other)
  Sender: FDA-Public Use
  Company Number: US-ASTRAZENECA-2019SF82058

PATIENT
  Age: 609 Day
  Sex: Male
  Weight: 10 kg

DRUGS (7)
  1. SYNAGIS [Suspect]
     Active Substance: PALIVIZUMAB
     Indication: RESPIRATORY SYNCYTIAL VIRUS INFECTION
     Dosage: 1.45ML UNKNOWN
     Route: 030
     Dates: start: 20191106, end: 20191203
  2. PROVENTIL HFA [Concomitant]
     Active Substance: ALBUTEROL SULFATE
     Indication: DYSPNOEA
  3. VITAMIN D [Concomitant]
     Active Substance: VITAMIN D NOS
  4. POLY-VI-SOL WITH IRON [Concomitant]
     Active Substance: IRON\VITAMINS
     Dosage: TAKE 0.5ML BY MOUNTH EVERY 12 HOURS,MONTHLY
     Route: 065
  5. FLOVENT HFA [Concomitant]
     Active Substance: FLUTICASONE PROPIONATE
     Dosage: INHALE 1 PUFF TWO TIMES A DAY
     Route: 065
  6. SYNAGIS [Suspect]
     Active Substance: PALIVIZUMAB
     Indication: RESPIRATORY SYNCYTIAL VIRUS INFECTION
     Route: 030
     Dates: start: 201910
  7. PROVENTIL HFA [Concomitant]
     Active Substance: ALBUTEROL SULFATE
     Indication: WHEEZING

REACTIONS (6)
  - Pneumonia [Unknown]
  - Respiratory syncytial virus bronchiolitis [Recovered/Resolved]
  - Acute respiratory failure [Unknown]
  - Diarrhoea [Unknown]
  - Post-tussive vomiting [Unknown]
  - Cough [Unknown]

NARRATIVE: CASE EVENT DATE: 20191208
